FAERS Safety Report 25433035 (Version 1)
Quarter: 2025Q2

REPORT INFORMATION
  Report Type: Spontaneous
  Country: DE (occurrence: DE)
  Receive Date: 20250613
  Receipt Date: 20250613
  Transmission Date: 20250717
  Serious: Yes (Hospitalization)
  Sender: BOEHRINGER INGELHEIM
  Company Number: DE-SANDOZ-SDZ2025DE039781

PATIENT
  Sex: Female

DRUGS (14)
  1. MELOXICAM [Suspect]
     Active Substance: MELOXICAM
     Indication: Product used for unknown indication
  2. MELOXICAM [Suspect]
     Active Substance: MELOXICAM
  3. MELOXICAM [Suspect]
     Active Substance: MELOXICAM
     Dates: start: 20090101, end: 20150225
  4. METHOTREXATE (METHOTREXATE SODIUM) [Suspect]
     Active Substance: METHOTREXATE SODIUM
     Indication: Product used for unknown indication
  5. CELECOXIB [Suspect]
     Active Substance: CELECOXIB
     Indication: Product used for unknown indication
  6. CELECOXIB [Suspect]
     Active Substance: CELECOXIB
  7. IBUPROFEN [Suspect]
     Active Substance: IBUPROFEN
     Indication: Product used for unknown indication
     Dates: start: 20210108, end: 20210111
  8. COSENTYX [Suspect]
     Active Substance: SECUKINUMAB
     Indication: Product used for unknown indication
     Dates: start: 20170503, end: 20200115
  9. COSENTYX [Suspect]
     Active Substance: SECUKINUMAB
  10. TALTZ [Suspect]
     Active Substance: IXEKIZUMAB
     Indication: Product used for unknown indication
     Dates: start: 20200212, end: 20200812
  11. TREMFYA [Suspect]
     Active Substance: GUSELKUMAB
     Indication: Product used for unknown indication
     Dates: start: 20210309, end: 20210730
  12. XELJANZ [Suspect]
     Active Substance: TOFACITINIB CITRATE
     Indication: Product used for unknown indication
     Dates: start: 20210908, end: 20220315
  13. RINVOQ [Suspect]
     Active Substance: UPADACITINIB
     Indication: Product used for unknown indication
     Dates: start: 20220320, end: 20221231
  14. RINVOQ [Suspect]
     Active Substance: UPADACITINIB

REACTIONS (1)
  - Removal of internal fixation [Unknown]
